FAERS Safety Report 14831984 (Version 5)
Quarter: 2018Q4

REPORT INFORMATION
  Report Type: Spontaneous
  Country: DK (occurrence: DK)
  Receive Date: 20180501
  Receipt Date: 20181217
  Transmission Date: 20190204
  Serious: Yes (Death, Life-Threatening, Hospitalization, Other)
  Sender: FDA-Public Use
  Company Number: DK-CELGENEUS-DNK-20180409633

PATIENT
  Age: 76 Year
  Sex: Male
  Weight: 74.2 kg

DRUGS (21)
  1. PLACEBO [Concomitant]
     Active Substance: UNSPECIFIED INGREDIENT
     Indication: ACUTE MYELOID LEUKAEMIA
     Route: 048
     Dates: start: 20180416, end: 20180416
  2. RASBURICASE [Concomitant]
     Active Substance: RASBURICASE
     Indication: PROPHYLAXIS
     Dosage: 15 MILLIGRAM
     Route: 041
     Dates: start: 20180416, end: 20180417
  3. RASBURICASE [Concomitant]
     Active Substance: RASBURICASE
     Dosage: 15 MILLIGRAM
     Route: 041
     Dates: start: 20180419, end: 20180419
  4. LORAZEPAM. [Concomitant]
     Active Substance: LORAZEPAM
     Indication: DISCOMFORT
     Route: 048
     Dates: start: 20180423, end: 20180424
  5. FUROSEMIDE. [Concomitant]
     Active Substance: FUROSEMIDE
     Dosage: 40 MILLIGRAM
     Route: 048
     Dates: start: 20180419, end: 20180419
  6. NITROLINGUAL [Concomitant]
     Active Substance: NITROGLYCERIN
     Indication: DYSPNOEA
  7. CALCIUM CARBONATE. [Concomitant]
     Active Substance: CALCIUM CARBONATE
     Dosage: 1350 MILLIGRAM
     Route: 048
     Dates: start: 20180423
  8. PLACEBO [Concomitant]
     Active Substance: UNSPECIFIED INGREDIENT
     Route: 048
     Dates: start: 20180416, end: 20180416
  9. LORAZEPAM. [Concomitant]
     Active Substance: LORAZEPAM
     Indication: ANXIETY
     Route: 048
     Dates: start: 20180413, end: 20180419
  10. NITROLINGUAL [Concomitant]
     Active Substance: NITROGLYCERIN
     Indication: CHEST PAIN
     Route: 060
     Dates: start: 20180416
  11. NORMAL SALINE [Concomitant]
     Active Substance: SODIUM CHLORIDE
     Indication: PROPHYLAXIS
     Dosage: 1200 MILLILITER
     Route: 041
     Dates: start: 20180416, end: 20180416
  12. NORMAL SALINE [Concomitant]
     Active Substance: SODIUM CHLORIDE
     Dosage: 3000 MILLILITER
     Route: 041
     Dates: start: 20180417, end: 20180417
  13. ZOPICLONE [Concomitant]
     Active Substance: ZOPICLONE
     Indication: SLEEP DISORDER
     Route: 048
     Dates: start: 20180411
  14. HYDROXYUREA. [Concomitant]
     Active Substance: HYDROXYUREA
     Indication: LEUKOCYTOSIS
     Dosage: 2000 MILLIGRAM
     Route: 048
     Dates: start: 20180418, end: 20180420
  15. HYDROXYUREA. [Concomitant]
     Active Substance: HYDROXYUREA
     Indication: MYELODYSPLASTIC SYNDROME
     Route: 065
     Dates: start: 20140117, end: 20180411
  16. CALCIUM CARBONATE. [Concomitant]
     Active Substance: CALCIUM CARBONATE
     Indication: HYPERPHOSPHATAEMIA
     Dosage: 1800 MILLIGRAM
     Route: 048
     Dates: start: 20180417, end: 20180423
  17. ALLOPURINOL. [Concomitant]
     Active Substance: ALLOPURINOL
     Indication: PROPHYLAXIS
     Dosage: 300 MILLIGRAM
     Route: 048
     Dates: start: 20180410, end: 20180419
  18. FUROSEMIDE. [Concomitant]
     Active Substance: FUROSEMIDE
     Indication: DIURETIC THERAPY
     Dosage: 160 MILLIGRAM
     Route: 048
     Dates: start: 20180416, end: 20180419
  19. CIPROFLOXACINE [Concomitant]
     Active Substance: CIPROFLOXACIN
     Indication: INFECTION PROPHYLAXIS
     Dosage: 1000 MILLIGRAM
     Route: 048
     Dates: start: 20180423
  20. AZACITIDINE. [Suspect]
     Active Substance: AZACITIDINE
     Indication: ACUTE MYELOID LEUKAEMIA
     Route: 058
     Dates: start: 20180416, end: 20180422
  21. ENALAPRIL [Concomitant]
     Active Substance: ENALAPRIL
     Indication: HYPERTENSION
     Dosage: 5 MILLIGRAM
     Route: 048
     Dates: start: 20180319

REACTIONS (3)
  - Pleural effusion [Unknown]
  - Azotaemia [Unknown]
  - Catheter site haemorrhage [Fatal]

NARRATIVE: CASE EVENT DATE: 20180418
